FAERS Safety Report 21253957 (Version 1)
Quarter: 2022Q3

REPORT INFORMATION
  Report Type: Spontaneous
  Country: US (occurrence: None)
  Receive Date: 20220824
  Receipt Date: 20220824
  Transmission Date: 20221027
  Serious: Yes (Death)
  Sender: FDA-Public Use
  Company Number: None

PATIENT
  Age: 72 Year
  Sex: Male
  Weight: 96.62 kg

DRUGS (18)
  1. ABIRATERONE [Suspect]
     Active Substance: ABIRATERONE
     Indication: Prostate cancer
     Dosage: FREQUENCY : DAILY;?
     Route: 048
     Dates: start: 20220625, end: 20220817
  2. PREDNISONE [Suspect]
     Active Substance: PREDNISONE
     Indication: Prostate cancer
     Dosage: FREQUENCY : TWICE A DAY;?
     Route: 048
     Dates: end: 20220817
  3. ACETAMINOPHEN [Concomitant]
     Active Substance: ACETAMINOPHEN
  4. AMIODARONE [Concomitant]
     Active Substance: AMIODARONE
  5. AMLODIPINE [Concomitant]
     Active Substance: AMLODIPINE BESYLATE
  6. DOXAZOSIN [Concomitant]
     Active Substance: DOXAZOSIN MESYLATE
  7. ELIQUIS [Concomitant]
     Active Substance: APIXABAN
  8. FAMOTIDINE [Concomitant]
     Active Substance: FAMOTIDINE
  9. K-PHOS-NEUTRAL [Concomitant]
  10. LUPRON [Concomitant]
     Active Substance: LEUPROLIDE ACETATE
  11. MAGOX [Concomitant]
  12. MAG SULFATE-LACT RINGERS [Concomitant]
  13. MEGESTROL [Concomitant]
     Active Substance: MEGESTROL
  14. MELATONIN [Concomitant]
     Active Substance: MELATONIN
  15. METFORMIN [Concomitant]
     Active Substance: METFORMIN HYDROCHLORIDE
  16. METOPROLOL [Concomitant]
     Active Substance: METOPROLOL
  17. POTASSIUM CHLORIDE [Concomitant]
     Active Substance: POTASSIUM CHLORIDE
  18. ROSUVASTATIN [Concomitant]
     Active Substance: ROSUVASTATIN

REACTIONS (1)
  - Death [None]

NARRATIVE: CASE EVENT DATE: 20220817
